FAERS Safety Report 23455176 (Version 2)
Quarter: 2024Q1

REPORT INFORMATION
  Report Type: Spontaneous
  Country: US (occurrence: US)
  Receive Date: 20240130
  Receipt Date: 20240313
  Transmission Date: 20240409
  Serious: No
  Sender: FDA-Public Use
  Company Number: US-BIOGEN-2021BI01069672

PATIENT
  Age: 58 Year
  Sex: Female

DRUGS (3)
  1. PLEGRIDY [Suspect]
     Active Substance: PEGINTERFERON BETA-1A
     Indication: Multiple sclerosis
     Dosage: ON DAY 1
     Route: 050
     Dates: start: 20211113
  2. PLEGRIDY [Suspect]
     Active Substance: PEGINTERFERON BETA-1A
     Dosage: ON DAY 15
     Route: 050
     Dates: start: 20211120
  3. PLEGRIDY [Suspect]
     Active Substance: PEGINTERFERON BETA-1A
     Dosage: 1 SYRINGE (125 MCG) EVERY 14 DAYS
     Route: 050
     Dates: start: 20211204, end: 20240105

REACTIONS (15)
  - Hypoaesthesia [Not Recovered/Not Resolved]
  - Decreased appetite [Not Recovered/Not Resolved]
  - Sciatica [Not Recovered/Not Resolved]
  - Chest discomfort [Not Recovered/Not Resolved]
  - Fatigue [Not Recovered/Not Resolved]
  - Abdominal discomfort [Unknown]
  - Pollakiuria [Unknown]
  - Alopecia [Unknown]
  - Chills [Not Recovered/Not Resolved]
  - Pyrexia [Unknown]
  - Headache [Not Recovered/Not Resolved]
  - Influenza like illness [Not Recovered/Not Resolved]
  - Asthenia [Not Recovered/Not Resolved]
  - Nausea [Not Recovered/Not Resolved]
  - Urticaria [Unknown]

NARRATIVE: CASE EVENT DATE: 20211101
